FAERS Safety Report 17579720 (Version 1)
Quarter: 2020Q1

REPORT INFORMATION
  Report Type: Spontaneous
  Country: GB (occurrence: GB)
  Receive Date: 20200325
  Receipt Date: 20200325
  Transmission Date: 20200409
  Serious: Yes (Other)
  Sender: FDA-Public Use
  Company Number: GB-TEVA-2020-GB-1209091

PATIENT
  Age: 69 Year
  Sex: Male
  Weight: 105 kg

DRUGS (16)
  1. TRIMETHOPRIM. [Suspect]
     Active Substance: TRIMETHOPRIM
     Route: 065
     Dates: start: 20200303
  2. BRALTUS [Concomitant]
     Active Substance: TIOTROPIUM BROMIDE
     Dosage: 1 DOSAGE FORMS
     Route: 055
     Dates: start: 20191230
  3. ZEROCREAM [Concomitant]
     Indication: DRY SKIN
     Dosage: TO DRY SKIN AREAS
     Dates: start: 20191022
  4. ACETYLSALICYLIC ACID [Concomitant]
     Active Substance: ASPIRIN
     Dosage: 1 DOSAGE FORMS
     Dates: start: 20191230
  5. AMLODIPINE [Concomitant]
     Active Substance: AMLODIPINE BESYLATE
     Dosage: 1 DOSAGE FORMS
     Dates: start: 20191022
  6. OXYBUTYNIN. [Concomitant]
     Active Substance: OXYBUTYNIN CHLORIDE
     Dosage: 2 DOSAGE FORMS
     Dates: start: 20191022
  7. TICAGRELOR. [Concomitant]
     Active Substance: TICAGRELOR
     Dosage: 2 DOSAGE FORMS
     Dates: start: 20191209
  8. GLICLAZIDE [Concomitant]
     Active Substance: GLICLAZIDE
     Dosage: TWO TO BE TAKEN WITH BREAKFAST AND ONE IN THE E...
     Dates: start: 20191022
  9. NOVOMIX [Concomitant]
     Active Substance: INSULIN ASPART
     Dosage: MDU
     Dates: start: 20191022
  10. ATORVASTATIN [Concomitant]
     Active Substance: ATORVASTATIN
     Dosage: AT NIGHT 1 DOSAGE FORMS
     Dates: start: 20191022
  11. FUROSEMIDE. [Concomitant]
     Active Substance: FUROSEMIDE
     Dosage: ONE TO BE TAKEN EACH MORNING AND TWO TO BE TAKE...
     Dates: start: 20191022
  12. BISOPROLOL [Concomitant]
     Active Substance: BISOPROLOL
     Dosage: 1 DOSAGE FORMS
     Dates: start: 20191230
  13. CLENIL MODULITE [Concomitant]
     Active Substance: BECLOMETHASONE DIPROPIONATE
     Dosage: PUFFS 4 DOSAGE FORMS
     Route: 055
     Dates: start: 20191230
  14. SODIUM PICOSULFATE [Concomitant]
     Active Substance: SODIUM PICOSULFATE
     Dosage: SPOONFUL TO BE TAKEN AT NIGHT 5ML
     Dates: start: 20191022
  15. DOXAZOSIN [Concomitant]
     Active Substance: DOXAZOSIN MESYLATE
     Dosage: AT NIGHT 1 DOSAGE FORMS
     Dates: start: 20191022
  16. OMEPRAZOLE. [Concomitant]
     Active Substance: OMEPRAZOLE
     Dosage: 1 DOSAGE FORMS
     Dates: start: 20191022

REACTIONS (1)
  - Angioedema [Recovered/Resolved]

NARRATIVE: CASE EVENT DATE: 20200303
